FAERS Safety Report 15884448 (Version 1)
Quarter: 2019Q1

REPORT INFORMATION
  Report Type: Spontaneous
  Country: US (occurrence: US)
  Receive Date: 20190129
  Receipt Date: 20190129
  Transmission Date: 20190417
  Serious: No
  Sender: FDA-Public Use
  Company Number: US-LANNETT COMPANY, INC.-US-2018LAN001384

PATIENT

DRUGS (2)
  1. BACLOFEN (10MG) [Suspect]
     Active Substance: BACLOFEN
     Dosage: 10 MG, QD
     Route: 048
  2. BACLOFEN (10MG) [Suspect]
     Active Substance: BACLOFEN
     Indication: GASTROOESOPHAGEAL SPHINCTER INSUFFICIENCY
     Dosage: 10 MG, 6XDAY
     Route: 048

REACTIONS (2)
  - Drug effect decreased [Not Recovered/Not Resolved]
  - Dizziness [Not Recovered/Not Resolved]
